FAERS Safety Report 25302867 (Version 3)
Quarter: 2025Q2

REPORT INFORMATION
  Report Type: Spontaneous
  Country: DE (occurrence: DE)
  Receive Date: 20250512
  Receipt Date: 20250623
  Transmission Date: 20250716
  Serious: Yes (Hospitalization, Other)
  Sender: NOVARTIS
  Company Number: DE-002147023-NVSC2025DE075501

PATIENT
  Age: 58 Year
  Sex: Male

DRUGS (9)
  1. SCEMBLIX [Suspect]
     Active Substance: ASCIMINIB HYDROCHLORIDE
     Indication: Chronic myeloid leukaemia
     Dosage: 40 MG, BID (2X40 MG)
     Route: 065
     Dates: start: 20250213, end: 2025
  2. SCEMBLIX [Suspect]
     Active Substance: ASCIMINIB HYDROCHLORIDE
     Dosage: 40 MG, BID (2X40 MG, 1-0-1)
     Route: 065
     Dates: start: 20250313, end: 20250421
  3. IMATINIB [Suspect]
     Active Substance: IMATINIB
     Indication: Chronic myeloid leukaemia
     Route: 065
  4. IMATINIB [Suspect]
     Active Substance: IMATINIB
     Indication: Mismatch repair cancer syndrome
  5. DASATINIB [Suspect]
     Active Substance: DASATINIB
     Indication: Mismatch repair cancer syndrome
     Route: 065
  6. TORSEMIDE [Concomitant]
     Active Substance: TORSEMIDE
     Indication: Product used for unknown indication
     Route: 065
  7. INSULIN NOS [Concomitant]
     Active Substance: INSULIN NOS
     Indication: Product used for unknown indication
     Route: 065
  8. METOPROLOL [Concomitant]
     Active Substance: METOPROLOL
     Indication: Product used for unknown indication
     Route: 065
  9. LISINOPRIL [Concomitant]
     Active Substance: LISINOPRIL
     Indication: Product used for unknown indication
     Route: 065

REACTIONS (8)
  - Posterior reversible encephalopathy syndrome [Not Recovered/Not Resolved]
  - Nephropathy [Unknown]
  - Coma [Not Recovered/Not Resolved]
  - Diabetes mellitus [Unknown]
  - Rhabdomyolysis [Unknown]
  - Arteriosclerosis [Unknown]
  - Hypertension [Unknown]
  - Headache [Not Recovered/Not Resolved]
